FAERS Safety Report 4594110-6 (Version None)
Quarter: 2005Q1

REPORT INFORMATION
  Report Type: 
  Country: None (occurrence: None)
  Receive Date: 20050222
  Receipt Date: 20050214
  Transmission Date: 20050727
  Serious: Yes (Other)
  Sender: FDA-Public Use
  Company Number: OMPQ-NO-0501S-0205

PATIENT
  Age: 76 Year
  Sex: Male
  Weight: 60 kg

DRUGS (4)
  1. OMNIPAQUE 140 [Suspect]
     Dosage: 100 ML, SINGLE DOSE, I.V.
     Route: 042
     Dates: start: 20041213, end: 20041213
  2. DEXCHLORPHENIRAMINE MALEATE [Concomitant]
  3. GLYCYRRHIZINATE POTASSIUM (NEOPHAGEN C) [Concomitant]
  4. GLUTATHIONE (TATHION) [Concomitant]

REACTIONS (3)
  - PLATELET COUNT DECREASED [None]
  - PRURITUS [None]
  - RASH [None]
